FAERS Safety Report 9107163 (Version 5)
Quarter: 2013Q4

REPORT INFORMATION
  Report Type: Spontaneous
  Country: US (occurrence: US)
  Receive Date: 20130221
  Receipt Date: 20131018
  Transmission Date: 20140711
  Serious: No
  Sender: FDA-Public Use
  Company Number: US-PFIZER INC-2013065694

PATIENT
  Age: 80 Year
  Sex: Female

DRUGS (5)
  1. LYRICA [Suspect]
     Indication: FIBROMYALGIA
     Dosage: UNK, 1X/DAY
  2. LYRICA [Suspect]
     Dosage: 75 MG, 3X/DAY
     Route: 048
     Dates: start: 201206, end: 201303
  3. LEVOXYL [Concomitant]
     Dosage: 75 MG, UNK
  4. VITAMIN D [Concomitant]
     Dosage: UNK
  5. VITAMIN C [Concomitant]
     Dosage: UNK

REACTIONS (4)
  - Depression [Recovered/Resolved]
  - Crying [Recovered/Resolved]
  - Pain [Unknown]
  - Malaise [Unknown]
